FAERS Safety Report 24302466 (Version 1)
Quarter: 2024Q3

REPORT INFORMATION
  Report Type: Spontaneous
  Country: FI (occurrence: FI)
  Receive Date: 20240910
  Receipt Date: 20240910
  Transmission Date: 20241017
  Serious: Yes (Hospitalization)
  Sender: TEVA
  Company Number: None

PATIENT
  Age: 75 Year
  Sex: Male

DRUGS (9)
  1. ROSUVASTATIN [Suspect]
     Active Substance: ROSUVASTATIN\ROSUVASTATIN CALCIUM
     Indication: Hypercholesterolaemia
     Dosage: 40MGX1, ROSUVASTATIN RATIOPHARM
     Route: 048
     Dates: start: 20240515, end: 20240810
  2. TICAGRELOR [Concomitant]
     Active Substance: TICAGRELOR
     Indication: Coronary artery disease
     Dosage: 90MGX2
     Route: 048
     Dates: start: 202402
  3. AMLODIPINE [Concomitant]
     Active Substance: AMLODIPINE BESYLATE
     Indication: Blood pressure measurement
     Dosage: 5MGX1
     Route: 048
     Dates: end: 20240810
  4. PERINDOPRIL ERBUMINE [Concomitant]
     Active Substance: PERINDOPRIL ERBUMINE
     Indication: Hypertension
     Dosage: 4MGX1
     Route: 048
     Dates: end: 20240810
  5. SPIRONOLACTONE [Concomitant]
     Active Substance: SPIRONOLACTONE
     Indication: Hypertension
     Dosage: 25MGX1
     Route: 048
     Dates: end: 20240810
  6. BISOPROLOL [Concomitant]
     Active Substance: BISOPROLOL\BISOPROLOL FUMARATE
     Indication: Hypertension
     Dosage: 2,5MGX1
     Route: 048
  7. EZETIMIBE [Concomitant]
     Active Substance: EZETIMIBE
     Indication: Hypercholesterolaemia
     Dosage: 10MGX1
     Route: 048
     Dates: end: 20240810
  8. ASPIRIN [Concomitant]
     Active Substance: ASPIRIN
     Indication: Coronary artery disease
     Dosage: 100MGX1
     Route: 048
  9. PANTOPRAZOLE [Concomitant]
     Active Substance: PANTOPRAZOLE
     Indication: Product used for unknown indication
     Dosage: 40MGX1,PANTOPRAZOLE ACTAVIS
     Route: 048

REACTIONS (9)
  - Musculoskeletal stiffness [Recovering/Resolving]
  - Anuria [Recovering/Resolving]
  - Rhabdomyolysis [Recovering/Resolving]
  - Dyspnoea [Recovering/Resolving]
  - Acute kidney injury [Recovering/Resolving]
  - Drug-genetic interaction [Recovering/Resolving]
  - Dialysis [Recovering/Resolving]
  - Mobility decreased [Recovering/Resolving]
  - General physical health deterioration [Recovering/Resolving]

NARRATIVE: CASE EVENT DATE: 20240601
